FAERS Safety Report 6049111-8 (Version None)
Quarter: 2009Q1

REPORT INFORMATION
  Report Type: 
  Country: None (occurrence: None)
  Receive Date: 20090123
  Receipt Date: 20090109
  Transmission Date: 20090719
  Serious: Yes (Hospitalization, Other)
  Sender: FDA-Public Use
  Company Number: US-AVENTIS-200910592US

PATIENT
  Sex: Male
  Weight: 79.2 kg

DRUGS (1)
  1. LOVENOX [Suspect]
     Indication: PROPHYLAXIS
     Dates: start: 20081201, end: 20090101

REACTIONS (3)
  - CARDIAC PERFORATION [None]
  - HAEMORRHAGE [None]
  - UNEVALUABLE EVENT [None]
